FAERS Safety Report 11524161 (Version 2)
Quarter: 2015Q4

REPORT INFORMATION
  Report Type: Spontaneous
  Country: JP (occurrence: JP)
  Receive Date: 20150918
  Receipt Date: 20151105
  Transmission Date: 20160304
  Serious: Yes (Hospitalization)
  Sender: FDA-Public Use
  Company Number: JP-TEVA-594074ISR

PATIENT
  Age: 54 Year
  Sex: Male
  Weight: 62 kg

DRUGS (1)
  1. TRISENOX [Suspect]
     Active Substance: ARSENIC TRIOXIDE
     Indication: ACUTE PROMYELOCYTIC LEUKAEMIA
     Dosage: 9.5 MILLIGRAM DAILY;
     Route: 042
     Dates: start: 20150813, end: 20150906

REACTIONS (2)
  - Hypoaesthesia [Recovering/Resolving]
  - VIIth nerve paralysis [Not Recovered/Not Resolved]

NARRATIVE: CASE EVENT DATE: 20150905
